FAERS Safety Report 7538764-0 (Version None)
Quarter: 2011Q2

REPORT INFORMATION
  Report Type: 
  Country: None (occurrence: None)
  Receive Date: 20110610
  Receipt Date: 20091108
  Transmission Date: 20111010
  Serious: Yes (Other)
  Sender: FDA-Public Use
  Company Number: US-BAYER-200938744NA

PATIENT
  Age: 51 Year
  Sex: Female
  Weight: 53 kg

DRUGS (19)
  1. HEPARIN [Concomitant]
     Route: 042
  2. TRAMADOL HCL [Concomitant]
     Dosage: UNK UNK, PRN
  3. PROTAMINE SULFATE [Concomitant]
     Dosage: 400 MG, UNK
     Route: 042
     Dates: start: 20050714
  4. ZYRTEC [Concomitant]
  5. LIPITOR [Concomitant]
     Dosage: 80 MG, QD
  6. VANCOMYCIN [Concomitant]
     Dosage: 100 MG, UNK
     Route: 042
     Dates: start: 20050714
  7. LIDOCAINE [Concomitant]
     Dosage: 100 MG, UNK
     Route: 042
     Dates: start: 20050714
  8. INSULIN [Concomitant]
     Dosage: UNK
     Route: 042
     Dates: start: 20050714
  9. MAGNESIUM SULFATE [Concomitant]
     Route: 042
  10. TRASYLOL [Suspect]
     Dosage: 50 ML/HR (INFUSION DOSE)
     Route: 042
     Dates: start: 20050714, end: 20050714
  11. CALCIUM CHLORIDE [Concomitant]
     Dosage: UNK
     Route: 042
     Dates: start: 20050714
  12. ZOLOFT [Concomitant]
     Dosage: 100 MG, QD
  13. GENTAMYCIN SULFATE [Concomitant]
     Dosage: 1 G, UNK
     Route: 042
     Dates: start: 20050714
  14. TRASYLOL [Suspect]
     Indication: CORONARY ARTERY BYPASS
     Dosage: 200 ML, (CARDIOPULMONARY BYPASS PRIME)
     Route: 042
     Dates: start: 20050714, end: 20050714
  15. TRASYLOL [Suspect]
     Dosage: 200 ML (LOADING DOSE)
     Route: 042
     Dates: start: 20050714, end: 20050714
  16. MOBIC [Concomitant]
     Dosage: 7.5 MG, BID
  17. AVANDAMET [Concomitant]
     Dosage: 2 PER 500 DAILY
  18. DOPAMINE HCL [Concomitant]
     Route: 042
  19. HYZAAR [Concomitant]
     Dosage: 25 MG, QD

REACTIONS (9)
  - FEAR [None]
  - MYOCARDIAL INFARCTION [None]
  - PAIN [None]
  - HEART INJURY [None]
  - UNEVALUABLE EVENT [None]
  - EMOTIONAL DISTRESS [None]
  - STRESS [None]
  - ANXIETY [None]
  - DEPRESSION [None]
